FAERS Safety Report 5280304-3 (Version None)
Quarter: 2007Q1

REPORT INFORMATION
  Report Type: 
  Country: None (occurrence: None)
  Receive Date: 20070329
  Receipt Date: 20070319
  Transmission Date: 20070707
  Serious: Yes (Other)
  Sender: FDA-Public Use
  Company Number: FR-GLAXOSMITHKLINE-B0462428A

PATIENT
  Age: 24 Year
  Sex: Female

DRUGS (1)
  1. DEROXAT [Suspect]
     Indication: DEPRESSION
     Dates: start: 20070314

REACTIONS (4)
  - DIARRHOEA [None]
  - INSOMNIA [None]
  - NAUSEA [None]
  - SYNCOPE VASOVAGAL [None]
